FAERS Safety Report 7352739-6 (Version None)
Quarter: 2011Q1

REPORT INFORMATION
  Report Type: 
  Country: None (occurrence: None)
  Receive Date: 20110302
  Receipt Date: 20100618
  Transmission Date: 20110831
  Serious: Yes (Hospitalization)
  Sender: FDA-Public Use
  Company Number: 310386

PATIENT
  Age: 36 Year
  Sex: Male
  Weight: 81.6 kg

DRUGS (1)
  1. NOVOLIN 70/30 [Suspect]
     Indication: DIABETES MELLITUS
     Route: 058

REACTIONS (1)
  - BLOOD GLUCOSE INCREASED [None]
